FAERS Safety Report 5116504-2 (Version None)
Quarter: 2006Q3

REPORT INFORMATION
  Report Type: 
  Country: None (occurrence: None)
  Receive Date: 20060928
  Receipt Date: 20060707
  Transmission Date: 20061208
  Serious: Yes (Death, Hospitalization)
  Sender: FDA-Public Use
  Company Number: PHEH2006US08712

PATIENT
  Age: 36 Year
  Sex: Male

DRUGS (1)
  1. EXJADE [Suspect]
     Indication: IRON DEFICIENCY
     Dosage: 1500 MG, QD
     Route: 048
     Dates: start: 20060419

REACTIONS (64)
  - ANAEMIA [None]
  - AORTIC CALCIFICATION [None]
  - ARTERIOSCLEROSIS [None]
  - ASCITES [None]
  - ASPIRATION [None]
  - BACTERIAL INFECTION [None]
  - BLOOD CREATININE INCREASED [None]
  - BONE MARROW NECROSIS [None]
  - BRADYCARDIA [None]
  - CARDIAC ARREST [None]
  - CARDIOMEGALY [None]
  - CATHETER SITE HAEMORRHAGE [None]
  - CHRONIC ALLOGRAFT NEPHROPATHY [None]
  - COAGULOPATHY [None]
  - COMPLICATIONS OF TRANSPLANTED KIDNEY [None]
  - DISSEMINATED INTRAVASCULAR COAGULATION [None]
  - ENTEROCOCCAL INFECTION [None]
  - ENTEROCOLITIS [None]
  - EPISTAXIS [None]
  - FAECAL INCONTINENCE [None]
  - FAECES DISCOLOURED [None]
  - FLUID RETENTION [None]
  - GASTRITIS FUNGAL [None]
  - GASTRITIS HAEMORRHAGIC [None]
  - GASTROINTESTINAL CANDIDIASIS [None]
  - GASTROINTESTINAL NECROSIS [None]
  - GENERALISED OEDEMA [None]
  - GLOMERULOSCLEROSIS [None]
  - GRAND MAL CONVULSION [None]
  - HAEMATOCRIT DECREASED [None]
  - HAEMODIALYSIS [None]
  - HAEMODYNAMIC INSTABILITY [None]
  - HAEMOGLOBIN DECREASED [None]
  - HEPATIC CIRRHOSIS [None]
  - HEPATORENAL SYNDROME [None]
  - HYPOTENSION [None]
  - KIDNEY FIBROSIS [None]
  - MENTAL STATUS CHANGES [None]
  - MULTI-ORGAN FAILURE [None]
  - NEPHROSCLEROSIS [None]
  - OBSTRUCTIVE UROPATHY [None]
  - OEDEMA PERIPHERAL [None]
  - PERITONEAL FLUID ANALYSIS ABNORMAL [None]
  - PLATELET COUNT DECREASED [None]
  - PLEURAL EFFUSION [None]
  - PNEUMONIA BACTERIAL [None]
  - PROTHROMBIN TIME PROLONGED [None]
  - PULMONARY CONGESTION [None]
  - PUNCTURE SITE HAEMORRHAGE [None]
  - RENAL ATROPHY [None]
  - RENAL FAILURE ACUTE [None]
  - RENAL IMPAIRMENT [None]
  - RENAL INFARCT [None]
  - RENAL TUBULAR NECROSIS [None]
  - RESPIRATORY FAILURE [None]
  - RESUSCITATION [None]
  - SEPSIS [None]
  - SEPSIS SYNDROME [None]
  - SICKLE CELL ANAEMIA [None]
  - STAPHYLOCOCCAL INFECTION [None]
  - THROMBOCYTOPENIA [None]
  - URINARY TRACT INFECTION [None]
  - UROSEPSIS [None]
  - VENTRICULAR HYPERTROPHY [None]
